FAERS Safety Report 7010470-0 (Version None)
Quarter: 2010Q3

REPORT INFORMATION
  Report Type: 
  Country: None (occurrence: None)
  Receive Date: 20100923
  Receipt Date: 20100917
  Transmission Date: 20110219
  Serious: No
  Sender: FDA-Public Use
  Company Number: US-ROXANE LABORATORIES, INC.-2010-RO-01247RO

PATIENT
  Sex: Male
  Weight: 84.09 kg

DRUGS (6)
  1. PREDNISONE [Suspect]
     Indication: PROSTATE CANCER
     Dosage: 10 MG
     Route: 048
     Dates: start: 20100804
  2. CARBAZITAXEL [Suspect]
     Indication: PROSTATE CANCER
     Route: 042
     Dates: start: 20100804
  3. AMARYL [Concomitant]
  4. METFORMIN [Concomitant]
  5. LOMOTIL [Concomitant]
  6. COUMADIN [Concomitant]

REACTIONS (1)
  - HYPERGLYCAEMIA [None]
